FAERS Safety Report 8775502 (Version 2)
Quarter: 2012Q4

REPORT INFORMATION
  Report Type: Report from Study
  Country: SE (occurrence: SE)
  Receive Date: 20120911
  Receipt Date: 20120919
  Transmission Date: 20130627
  Serious: Yes (Hospitalization)
  Sender: FDA-Public Use
  Company Number: SE-ROCHE-1096758

PATIENT
  Age: 88 Year
  Sex: Female
  Weight: 71.2 kg

DRUGS (10)
  1. VISMODEGIB [Suspect]
     Indication: HEAD AND NECK CANCER
     Dosage: Most recent dose prior to SAE 23/Jul/2012
     Route: 048
     Dates: start: 20120326, end: 20120723
  2. CALCIUM CARBONATE [Concomitant]
     Indication: OSTEOPOROSIS
     Route: 065
     Dates: start: 201203
  3. COLECALCIFEROL [Concomitant]
     Indication: OSTEOPOROSIS
     Dosage: Daily dose 800 IE
     Route: 065
     Dates: start: 201203
  4. ACETYLSALICYLSYRA [Concomitant]
     Indication: ATRIAL FIBRILLATION
     Route: 065
     Dates: start: 201112, end: 20120425
  5. DUROFERON [Concomitant]
     Indication: ANAEMIA
     Route: 065
     Dates: start: 201001
  6. BEHEPAN [Concomitant]
     Indication: ANAEMIA
     Route: 065
     Dates: start: 201001
  7. FUROSEMIDE [Concomitant]
     Indication: ATRIAL FIBRILLATION
     Route: 065
     Dates: start: 201001
  8. AMILORIDE [Concomitant]
     Indication: HYPERTONIA
     Route: 065
     Dates: start: 198001
  9. PARACETAMOL [Concomitant]
     Indication: TUMOUR PAIN
     Route: 065
     Dates: start: 201001
  10. DIAZEPAM [Concomitant]
     Indication: MUSCLE SPASMS
     Dosage: 5 mg as required.
     Route: 065
     Dates: start: 200801

REACTIONS (1)
  - Dysgeusia [Recovered/Resolved with Sequelae]
